FAERS Safety Report 9162179 (Version 4)
Quarter: 2013Q2

REPORT INFORMATION
  Report Type: Spontaneous
  Country: US (occurrence: US)
  Receive Date: 20130314
  Receipt Date: 20130613
  Transmission Date: 20140414
  Serious: Yes (Other)
  Sender: FDA-Public Use
  Company Number: US-BAYER-2013-029937

PATIENT
  Sex: Female
  Weight: 61 kg

DRUGS (1)
  1. CIPRO [Suspect]
     Indication: INFECTION PROPHYLAXIS
     Dosage: UNK
     Dates: start: 199706

REACTIONS (6)
  - Pulmonary mycosis [None]
  - Pulmonary mass [None]
  - Fungal test positive [None]
  - Pulmonary fibrosis [Recovering/Resolving]
  - Wheezing [Recovering/Resolving]
  - Gastric disorder [None]
